FAERS Safety Report 24737913 (Version 1)
Quarter: 2024Q4

REPORT INFORMATION
  Report Type: Spontaneous
  Country: GB (occurrence: GB)
  Receive Date: 20241216
  Receipt Date: 20241216
  Transmission Date: 20250114
  Serious: Yes (Other)
  Sender: TEVA
  Company Number: GB-TEVA-VS-3273805

PATIENT

DRUGS (2)
  1. OLANZAPINE [Suspect]
     Active Substance: OLANZAPINE
     Indication: Schizophrenia
     Route: 065
  2. OLANZAPINE [Suspect]
     Active Substance: OLANZAPINE
     Indication: Schizophrenia
     Route: 065

REACTIONS (7)
  - Hallucination, auditory [Unknown]
  - Weight increased [Not Recovered/Not Resolved]
  - Fatigue [Recovered/Resolved with Sequelae]
  - Narcolepsy [Unknown]
  - Blood triglycerides increased [Unknown]
  - Feeling abnormal [Unknown]
  - Aphonia [Unknown]
